FAERS Safety Report 7732646-7 (Version None)
Quarter: 2011Q3

REPORT INFORMATION
  Report Type: 
  Country: None (occurrence: None)
  Receive Date: 20110907
  Receipt Date: 20110830
  Transmission Date: 20111222
  Serious: Yes (Hospitalization)
  Sender: FDA-Public Use
  Company Number: JP-AMGEN-JPNSP2011045100

PATIENT

DRUGS (6)
  1. CELECOXIB [Suspect]
     Dosage: UNK
  2. ENBREL [Suspect]
     Indication: RHEUMATOID ARTHRITIS
     Dosage: 50 MG, WEEKLY
     Route: 058
     Dates: start: 20110623, end: 20110812
  3. PREDNISOLONE [Suspect]
     Dosage: UNK
  4. VOLTAREN [Suspect]
     Dosage: UNK
  5. ISONIAZID [Suspect]
     Dosage: UNK
     Route: 065
  6. CLARITHROMYCIN [Suspect]
     Dosage: UNK
     Route: 065

REACTIONS (1)
  - STEVENS-JOHNSON SYNDROME [None]
